FAERS Safety Report 15613118 (Version 1)
Quarter: 2018Q4

REPORT INFORMATION
  Report Type: Spontaneous
  Country: US (occurrence: US)
  Receive Date: 20181113
  Receipt Date: 20181113
  Transmission Date: 20190205
  Serious: Yes (Hospitalization)
  Sender: FDA-Public Use
  Company Number: US-PERRIGO-18US012584

PATIENT
  Weight: 1.7 kg

DRUGS (1)
  1. ACETAMINOPHEN. [Suspect]
     Active Substance: ACETAMINOPHEN
     Indication: FOETAL EXPOSURE DURING PREGNANCY
     Dosage: UNKNOWN, UNKNOWN
     Route: 064

REACTIONS (3)
  - Medical device site haemorrhage [Unknown]
  - Foetal exposure during pregnancy [Recovered/Resolved]
  - Coagulopathy [Recovered/Resolved]
